FAERS Safety Report 25229548 (Version 1)
Quarter: 2025Q2

REPORT INFORMATION
  Report Type: Spontaneous
  Country: US (occurrence: US)
  Receive Date: 20250423
  Receipt Date: 20250423
  Transmission Date: 20250717
  Serious: No
  Sender: PFIZER
  Company Number: US-PFIZER INC-202500083294

PATIENT
  Age: 52 Year
  Sex: Female

DRUGS (2)
  1. BOSULIF [Suspect]
     Active Substance: BOSUTINIB MONOHYDRATE
     Dosage: 200 MG, DAILY (2 TABLETS DAILY FOR 2 WEEKS THEN 3 TABLETS DAILY FOR 2 WEEKS THEN AS DIRECTED)
     Dates: start: 202402
  2. BOSULIF [Suspect]
     Active Substance: BOSUTINIB MONOHYDRATE
     Dosage: 200 MG, DAILY (2 TABLETS DAILY FOR 2 WEEKS THEN 3 TABLETS DAILY FOR 2 WEEKS THEN AS DIRECTED)
     Dates: start: 20250411

REACTIONS (1)
  - Diarrhoea [Recovered/Resolved]

NARRATIVE: CASE EVENT DATE: 20240101
